FAERS Safety Report 17680350 (Version 4)
Quarter: 2020Q2

REPORT INFORMATION
  Report Type: Report from Study
  Country: None (occurrence: KR)
  Receive Date: 20200417
  Receipt Date: 20200617
  Transmission Date: 20200714
  Serious: Yes (Death)
  Sender: FDA-Public Use
  Company Number: KR-ABBVIE-20K-090-3368918-00

PATIENT
  Age: 60 Year
  Sex: Female
  Weight: 51 kg

DRUGS (19)
  1. BETMIGA [Concomitant]
     Active Substance: MIRABEGRON
     Indication: URETEROLITHIASIS
  2. DIGOSIN [Concomitant]
     Active Substance: DIGOXIN
     Indication: ATRIAL FIBRILLATION
  3. NEURONTIN [Concomitant]
     Active Substance: GABAPENTIN
     Indication: NEUROPATHY PERIPHERAL
  4. SOLONDO [Concomitant]
     Active Substance: PREDNISOLONE
     Indication: ARTERITIS
  5. IRCODON [Concomitant]
     Active Substance: OXYCODONE HYDROCHLORIDE
     Indication: ARTERITIS
  6. URO VAXOM [Concomitant]
     Active Substance: ESCHERICHIA COLI
     Indication: URETEROLITHIASIS
  7. TARGIN [Concomitant]
     Active Substance: NALOXONE HYDROCHLORIDE\OXYCODONE HYDROCHLORIDE
     Indication: ARTERITIS
  8. VENCLEXTA [Suspect]
     Active Substance: VENETOCLAX
     Indication: CHRONIC LYMPHOCYTIC LEUKAEMIA
     Route: 048
     Dates: start: 20200402, end: 20200408
  9. BARACLUDE [Concomitant]
     Active Substance: ENTECAVIR
     Indication: HEPATITIS B
  10. PENIRAMIN [Concomitant]
     Indication: NEUROPATHY PERIPHERAL
  11. CONBLOC [Concomitant]
     Indication: ATRIAL FIBRILLATION
  12. VENCLEXTA [Suspect]
     Active Substance: VENETOCLAX
     Route: 048
     Dates: start: 20200409, end: 20200414
  13. LYRICA [Concomitant]
     Active Substance: PREGABALIN
     Indication: NEUROPATHY PERIPHERAL
  14. ZYLORIC [Concomitant]
     Active Substance: ALLOPURINOL
     Indication: PROPHYLAXIS
  15. DURICEF [Concomitant]
     Active Substance: CEFADROXIL
     Indication: URETEROLITHIASIS
  16. SALAGEN [Concomitant]
     Active Substance: PILOCARPINE HYDROCHLORIDE
     Indication: PROPHYLAXIS
  17. AMPHOJEL [Concomitant]
     Active Substance: ALUMINUM HYDROXIDE
     Indication: ULCER
  18. VESICARE [Concomitant]
     Active Substance: SOLIFENACIN SUCCINATE
     Indication: URETEROLITHIASIS
  19. ASPIRIN. [Concomitant]
     Active Substance: ASPIRIN
     Indication: ATRIAL FIBRILLATION

REACTIONS (2)
  - Chronic lymphocytic leukaemia [Fatal]
  - Septic shock [Fatal]

NARRATIVE: CASE EVENT DATE: 2020
